FAERS Safety Report 15127894 (Version 3)
Quarter: 2018Q3

REPORT INFORMATION
  Report Type: Report from Study
  Country: US (occurrence: US)
  Receive Date: 20180710
  Receipt Date: 20180727
  Transmission Date: 20181010
  Serious: Yes (Death, Hospitalization)
  Sender: FDA-Public Use
  Company Number: US-ACTELION-A-US2018-174934

PATIENT
  Age: 28 Year
  Sex: Male

DRUGS (16)
  1. UPTRAVI [Suspect]
     Active Substance: SELEXIPAG
     Indication: PULMONARY HYPERTENSION
     Dosage: 1000 MCG, BID
     Route: 048
  2. DIVALPROEX [Concomitant]
     Active Substance: DIVALPROEX SODIUM
  3. UPTRAVI [Suspect]
     Active Substance: SELEXIPAG
     Dosage: 600 MCG, BID
     Route: 048
  4. CLONAZEPAM. [Concomitant]
     Active Substance: CLONAZEPAM
  5. FLECAINIDE [Concomitant]
     Active Substance: FLECAINIDE
     Dosage: UNK
     Dates: start: 20180222
  6. MELATONIN [Concomitant]
     Active Substance: MELATONIN
  7. ATENOLOL. [Concomitant]
     Active Substance: ATENOLOL
  8. FAMOTIDINE. [Concomitant]
     Active Substance: FAMOTIDINE
     Dosage: UNK
     Dates: start: 20180222
  9. OPSUMIT [Suspect]
     Active Substance: MACITENTAN
     Indication: PULMONARY HYPERTENSION
     Dosage: 10 MG, UNK
     Route: 048
     Dates: start: 20140917, end: 20180628
  10. FUROSEMIDE. [Concomitant]
     Active Substance: FUROSEMIDE
  11. TRILEPTAL [Concomitant]
     Active Substance: OXCARBAZEPINE
  12. CLARITIN [Concomitant]
     Active Substance: LORATADINE
  13. LEVOTHYROXINE. [Concomitant]
     Active Substance: LEVOTHYROXINE
  14. METOPROLOL. [Concomitant]
     Active Substance: METOPROLOL
     Dosage: UNK
     Dates: start: 20180222
  15. PROMETHAZINE [Concomitant]
     Active Substance: PROMETHAZINE\PROMETHAZINE HYDROCHLORIDE
     Dosage: UNK
     Dates: start: 20180222
  16. CETRIZINE [Concomitant]
     Active Substance: CETIRIZINE HYDROCHLORIDE
     Dosage: UNK
     Dates: start: 20180222

REACTIONS (13)
  - Acute respiratory failure [Fatal]
  - Hypotension [Fatal]
  - Pneumonia [Unknown]
  - Clostridium difficile colitis [Unknown]
  - Blood culture positive [Unknown]
  - Condition aggravated [Unknown]
  - Diarrhoea [Not Recovered/Not Resolved]
  - Pyrexia [Unknown]
  - Rash [Recovered/Resolved]
  - Hypoxia [Fatal]
  - Deep vein thrombosis [Unknown]
  - Seizure [Unknown]
  - Oxygen consumption increased [Unknown]

NARRATIVE: CASE EVENT DATE: 20180328
